FAERS Safety Report 4848753-2 (Version None)
Quarter: 2005Q4

REPORT INFORMATION
  Report Type: 
  Country: None (occurrence: None)
  Receive Date: 20051206
  Receipt Date: 20051128
  Transmission Date: 20060501
  Serious: Yes (Other)
  Sender: FDA-Public Use
  Company Number: 2005P1000579

PATIENT
  Age: 46 Year
  Sex: 0

DRUGS (2)
  1. RETEPLASE (RETEPLASE) [Suspect]
     Indication: ISCHAEMIC STROKE
  2. ABCIXIMAB (ABCIXIMAB) [Suspect]
     Indication: ISCHAEMIC STROKE

REACTIONS (7)
  - CORONARY ARTERY DISSECTION [None]
  - ELECTROCARDIOGRAM Q WAVES [None]
  - HAEMATOMA [None]
  - INJECTION SITE HAEMORRHAGE [None]
  - MYOCARDIAL INFARCTION [None]
  - MYOCARDIAL ISCHAEMIA [None]
  - PUNCTURE SITE REACTION [None]
